FAERS Safety Report 15130890 (Version 1)
Quarter: 2018Q3

REPORT INFORMATION
  Report Type: Spontaneous
  Country: ZA (occurrence: ZA)
  Receive Date: 20180711
  Receipt Date: 20180711
  Transmission Date: 20181010
  Serious: Yes (Hospitalization)
  Sender: FDA-Public Use
  Company Number: ZA-PFIZER INC-2018276759

PATIENT
  Age: 53 Year
  Sex: Male

DRUGS (8)
  1. CARLOC [Suspect]
     Active Substance: CARVEDILOL
     Dosage: 6.25 MG, UNK
  2. DISPRIN CARDIOCARE [Suspect]
     Active Substance: ASPIRIN
     Dosage: 100 MG, UNK
  3. ASPAVOR [Suspect]
     Active Substance: ATORVASTATIN
     Dosage: 40 MG, UNK
  4. FUROSEMIDE. [Suspect]
     Active Substance: FUROSEMIDE
     Dosage: 40 MG, UNK
  5. PURGOXIN [Suspect]
     Active Substance: DIGOXIN
     Dosage: 0.25 MG, UNK
  6. CLOPIWIN [Suspect]
     Active Substance: CLOPIDOGREL BISULFATE
     Dosage: 75 MG, UNK
  7. ZETOMAX [Suspect]
     Active Substance: LISINOPRIL
     Dosage: 5 MG, UNK
  8. ESCITALOPRAM [Suspect]
     Active Substance: ESCITALOPRAM OXALATE
     Dosage: 10 MG, UNK

REACTIONS (1)
  - Cardiac failure [Unknown]
